FAERS Safety Report 6209506-6 (Version None)
Quarter: 2009Q2

REPORT INFORMATION
  Report Type: 
  Country: None (occurrence: None)
  Receive Date: 20090527
  Receipt Date: 20090510
  Transmission Date: 20091009
  Serious: Yes (Other)
  Sender: FDA-Public Use
  Company Number: GB-DEXPHARM-20090695

PATIENT
  Age: 65 Year
  Sex: Female

DRUGS (7)
  1. OMEPRAZOLE [Suspect]
     Indication: HIATUS HERNIA
     Dosage: DOSE: 20 MG MILLIGRAM(S) SEP. DOSAGES / INTERVAL: 1 IN 1 DAY ORAL
     Route: 048
  2. AMLODIPINE ACTIVE SUBSTANCES: AMLODIPINE [Suspect]
     Indication: BLOOD PRESSURE
     Dosage: DOSE: 5 MG MILLIGRAM(S) SEP. DOSAGES / INTERVAL: 1 IN 1 DAY ORAL
     Route: 048
  3. SERETIDE [Suspect]
     Indication: ASTHMA
     Dosage: DOSE: 2 DF FORM SEP. DOSAGES / INTERVAL: 2 IN 1 DAY RESPIRATORY (INHALATION)
     Route: 055
     Dates: start: 20040101
  4. SINGULAIR [Suspect]
     Indication: ASTHMA
     Dosage: DOSE: 10 MG MILLIGRAM(S) SEP. DOSAGES / INTERVAL: 1 IN 1 DAY ORAL
     Route: 048
  5. VENTOLIN [Suspect]
     Indication: ASTHMA
     Dosage: DOSAGE TEXT: AS NECESSARY DOSE: 100 ?G MICROGRAM(S) RESPIRATORY (INHALATION)
     Route: 055
  6. DIHYDROCODEINE BITARTRATE INJ [Concomitant]
  7. TRIAMCINOLONE [Concomitant]

REACTIONS (3)
  - ASTHMA [None]
  - CONDITION AGGRAVATED [None]
  - RHINITIS [None]
